FAERS Safety Report 5151766-7 (Version None)
Quarter: 2006Q4

REPORT INFORMATION
  Report Type: 
  Country: None (occurrence: None)
  Receive Date: 20061106
  Receipt Date: 20061025
  Transmission Date: 20070319
  Serious: Yes (Other)
  Sender: FDA-Public Use
  Company Number: B0444628A

PATIENT
  Age: 30 Year
  Sex: Female

DRUGS (6)
  1. EPIVIR [Suspect]
     Indication: HIV INFECTION
  2. EFAVIRENZ [Suspect]
     Indication: HIV INFECTION
  3. TENOFOVIR (TENOFOVIR) [Suspect]
     Indication: HIV INFECTION
  4. RIFAMPICIN [Concomitant]
  5. ETHAMBUTOL HYDROCHLORIDE [Concomitant]
  6. MOXIFLOXACIN HCL [Concomitant]

REACTIONS (14)
  - ABDOMINAL PAIN [None]
  - ASCITES [None]
  - CULTURE POSITIVE [None]
  - IMMUNE RECONSTITUTION SYNDROME [None]
  - INFLAMMATION [None]
  - KIDNEY ENLARGEMENT [None]
  - LYMPHADENOPATHY [None]
  - NEPHRITIS INTERSTITIAL [None]
  - OVARIAN ABSCESS [None]
  - PELVIC PAIN [None]
  - PYREXIA [None]
  - RENAL FAILURE ACUTE [None]
  - SALPINGITIS [None]
  - TUBERCULOSIS [None]
